FAERS Safety Report 8601709-6 (Version None)
Quarter: 2012Q3

REPORT INFORMATION
  Report Type: 
  Country: None (occurrence: None)
  Receive Date: 20120817
  Receipt Date: 20120130
  Transmission Date: 20120928
  Serious: No
  Sender: FDA-Public Use
  Company Number: US-BRISTOL-MYERS SQUIBB COMPANY-16374449

PATIENT
  Age: 65 Year
  Sex: Female
  Weight: 64 kg

DRUGS (3)
  1. HYDROCODONE [Suspect]
  2. SPRYCEL [Suspect]
     Indication: LEUKAEMIA
     Dates: start: 20120119
  3. NORVASC [Concomitant]

REACTIONS (9)
  - DYSURIA [None]
  - PRURITUS [None]
  - HAEMORRHAGE SUBCUTANEOUS [None]
  - SNEEZING [None]
  - BLADDER PAIN [None]
  - EPISTAXIS [None]
  - HEADACHE [None]
  - BLOOD PRESSURE INCREASED [None]
  - RASH MACULAR [None]
